FAERS Safety Report 23478722 (Version 1)
Quarter: 2024Q1

REPORT INFORMATION
  Report Type: Spontaneous
  Country: MX (occurrence: MX)
  Receive Date: 20240205
  Receipt Date: 20240205
  Transmission Date: 20240409
  Serious: No
  Sender: FDA-Public Use
  Company Number: MX-IPSEN Group, Research and Development-2023-21671

PATIENT
  Sex: Male

DRUGS (3)
  1. CABOMETYX [Suspect]
     Active Substance: CABOZANTINIB S-MALATE
     Indication: Prostate cancer
     Route: 048
  2. CABOMETYX [Suspect]
     Active Substance: CABOZANTINIB S-MALATE
     Indication: Off label use
  3. PEMBROLIZUMAB [Suspect]
     Active Substance: PEMBROLIZUMAB
     Indication: Prostate cancer
     Dosage: UNK
     Route: 065

REACTIONS (1)
  - Off label use [Unknown]
